FAERS Safety Report 8353058-1 (Version None)
Quarter: 2012Q2

REPORT INFORMATION
  Report Type: 
  Country: None (occurrence: None)
  Receive Date: 20120511
  Receipt Date: 20120508
  Transmission Date: 20120825
  Serious: Yes (Other)
  Sender: FDA-Public Use
  Company Number: US-PFIZER INC-2012112909

PATIENT
  Sex: Female

DRUGS (7)
  1. WELLBUTRIN [Concomitant]
     Dosage: UNK
  2. NORCO [Concomitant]
     Indication: PAIN
     Dosage: UNK
  3. LASIX [Concomitant]
     Dosage: UNK
  4. SYNTHROID [Concomitant]
     Dosage: UNK
  5. PREDNISONE [Concomitant]
     Dosage: UNK
  6. PLAQUENIL [Concomitant]
     Dosage: UNK
  7. CELEBREX [Suspect]
     Indication: RHEUMATOID ARTHRITIS
     Dosage: 200 MG, 1X/DAY
     Route: 048
     Dates: start: 20070101, end: 20120425

REACTIONS (1)
  - LUNG NEOPLASM MALIGNANT [None]
